FAERS Safety Report 8064300-9 (Version None)
Quarter: 2012Q1

REPORT INFORMATION
  Report Type: 
  Country: None (occurrence: None)
  Receive Date: 20120123
  Receipt Date: 20120117
  Transmission Date: 20120608
  Serious: No
  Sender: FDA-Public Use
  Company Number: US-PFIZER INC-2012014761

PATIENT
  Sex: Male
  Weight: 74.83 kg

DRUGS (4)
  1. GEMFIBROZIL [Concomitant]
     Indication: BLOOD TRIGLYCERIDES INCREASED
     Dosage: 600 MG, DAILY
  2. LYRICA [Suspect]
     Indication: INTERVERTEBRAL DISC PROTRUSION
  3. LYRICA [Suspect]
     Indication: ANKYLOSING SPONDYLITIS
     Dosage: 50 MG, 3X/DAY
     Dates: start: 20111114
  4. ENALAPRIL [Concomitant]
     Indication: BLOOD PRESSURE ABNORMAL
     Dosage: 10 MG, DAILY

REACTIONS (1)
  - DIZZINESS [None]
